FAERS Safety Report 4956440-5 (Version None)
Quarter: 2006Q1

REPORT INFORMATION
  Report Type: 
  Country: None (occurrence: None)
  Receive Date: 20060328
  Receipt Date: 20060328
  Transmission Date: 20060701
  Serious: Yes (Hospitalization)
  Sender: FDA-Public Use
  Company Number: None

PATIENT
  Age: 34 Year
  Sex: Female
  Weight: 79.8331 kg

DRUGS (5)
  1. SEPTRA DS [Suspect]
     Indication: INFECTION
     Dosage: 1 PO BID
     Route: 048
  2. SEPTRA DS [Suspect]
     Indication: SINUSITIS
     Dosage: 1 PO BID
     Route: 048
  3. SEPTRA [Concomitant]
  4. MEDROL [Concomitant]
  5. SUDAFED 12 HOUR [Concomitant]

REACTIONS (11)
  - ABDOMINAL PAIN UPPER [None]
  - DRUG HYPERSENSITIVITY [None]
  - ELECTROCARDIOGRAM ABNORMAL [None]
  - ELECTROLYTE IMBALANCE [None]
  - NAUSEA [None]
  - ORAL MUCOSAL ERUPTION [None]
  - PRURITUS [None]
  - RASH [None]
  - SKIN LESION [None]
  - URTICARIA [None]
  - VOMITING [None]
